FAERS Safety Report 5073897-2 (Version None)
Quarter: 2006Q3

REPORT INFORMATION
  Report Type: 
  Country: None (occurrence: None)
  Receive Date: 20060802
  Receipt Date: 20060720
  Transmission Date: 20061208
  Serious: Yes (Other)
  Sender: FDA-Public Use
  Company Number: 2006090813

PATIENT
  Age: 88 Year
  Sex: Male
  Weight: 81.6475 kg

DRUGS (2)
  1. LYRICA [Suspect]
     Indication: ABDOMINAL PAIN UPPER
     Dosage: 150 MG (75 MG, 2 IN 1 D)
     Dates: start: 20060719, end: 20060720
  2. ANTIHYPERTENSIVES (ANTIHYPERTENSIVES) [Concomitant]

REACTIONS (7)
  - ASTHENIA [None]
  - DISTURBANCE IN ATTENTION [None]
  - DIZZINESS [None]
  - FALL [None]
  - FEELING DRUNK [None]
  - GAIT DISTURBANCE [None]
  - SOMNOLENCE [None]
